FAERS Safety Report 7777013-5 (Version None)
Quarter: 2011Q3

REPORT INFORMATION
  Report Type: 
  Country: None (occurrence: None)
  Receive Date: 20110926
  Receipt Date: 20110926
  Transmission Date: 20111222
  Serious: Yes (Hospitalization, Other)
  Sender: FDA-Public Use
  Company Number: None

PATIENT
  Sex: Female
  Weight: 110.22 kg

DRUGS (1)
  1. MIRENA [Suspect]
     Indication: CONSTIPATION
     Dates: start: 20060916, end: 20111020

REACTIONS (4)
  - PAIN [None]
  - HYPERTENSION [None]
  - MIGRAINE [None]
  - MEDICAL DEVICE COMPLICATION [None]
